FAERS Safety Report 18215181 (Version 1)
Quarter: 2020Q3

REPORT INFORMATION
  Report Type: Spontaneous
  Country: US (occurrence: US)
  Receive Date: 20200831
  Receipt Date: 20200831
  Transmission Date: 20201103
  Serious: Yes (Other)
  Sender: FDA-Public Use
  Company Number: US-AMNEAL PHARMACEUTICALS-2020-AMRX-02628

PATIENT
  Age: 77 Year
  Sex: Male

DRUGS (1)
  1. ITRACONAZOLE. [Suspect]
     Active Substance: ITRACONAZOLE
     Indication: ACUTE PULMONARY HISTOPLASMOSIS
     Dosage: 200 MILLIGRAM, BID
     Route: 048

REACTIONS (2)
  - Oedema [Recovered/Resolved]
  - Pleural effusion [Recovered/Resolved]
